FAERS Safety Report 6598138-6 (Version None)
Quarter: 2010Q1

REPORT INFORMATION
  Report Type: 
  Country: None (occurrence: None)
  Receive Date: 20100224
  Receipt Date: 20050120
  Transmission Date: 20100710
  Serious: No
  Sender: FDA-Public Use
  Company Number: US-ALLERGAN-200501338

PATIENT
  Sex: Female

DRUGS (2)
  1. BOTOX [Suspect]
     Indication: TORTICOLLIS
     Dosage: 60UNITS, SINGLE
     Route: 030
     Dates: start: 20041229
  2. CLINDAMYCIN [Suspect]
     Indication: PROPHYLAXIS

REACTIONS (3)
  - DRUG INTERACTION [None]
  - DYSPNOEA [None]
  - MUSCULAR WEAKNESS [None]
